FAERS Safety Report 4377911-9 (Version None)
Quarter: 2004Q2

REPORT INFORMATION
  Report Type: 
  Country: None (occurrence: None)
  Receive Date: 20040616
  Receipt Date: 20040602
  Transmission Date: 20050107
  Serious: Yes (Life-Threatening, Hospitalization)
  Sender: FDA-Public Use
  Company Number: PHBS2004CH07403

PATIENT
  Age: 64 Year
  Sex: Male

DRUGS (3)
  1. CLOZAPINE [Suspect]
     Indication: SCHIZOPHRENIA
     Dosage: 200 - 375 MG/D
     Route: 065
  2. CLOMIPRAMINE HCL [Suspect]
     Indication: DEPRESSIVE SYMPTOM
     Dosage: 75 - 200 MG/D
     Route: 065
  3. DOMPERIDONE [Concomitant]
     Route: 065

REACTIONS (10)
  - CHOKING [None]
  - CIRCULATORY COLLAPSE [None]
  - DYSKINESIA [None]
  - DYSPHAGIA [None]
  - DYSPNOEA [None]
  - HICCUPS [None]
  - OESOPHAGEAL DILATATION [None]
  - PNEUMONIA ASPIRATION [None]
  - REGURGITATION OF FOOD [None]
  - RESPIRATORY DISTRESS [None]
